FAERS Safety Report 4420341-1 (Version None)
Quarter: 2004Q3

REPORT INFORMATION
  Report Type: 
  Country: None (occurrence: None)
  Receive Date: 20040809
  Receipt Date: 20040406
  Transmission Date: 20050211
  Serious: No
  Sender: FDA-Public Use
  Company Number: US-GLAXOSMITHKLINE-A0505964A

PATIENT
  Sex: Female

DRUGS (6)
  1. PAXIL [Suspect]
     Indication: DEPRESSION
     Dosage: 20MG PER DAY
     Route: 048
  2. K-DUR 10 [Concomitant]
  3. BUMETANIDE [Concomitant]
  4. COMBIVENT [Concomitant]
  5. IPRATROPIUM BROMIDE [Concomitant]
  6. QVAR 40 [Concomitant]

REACTIONS (1)
  - BURNING SENSATION [None]
